FAERS Safety Report 22697251 (Version 3)
Quarter: 2024Q2

REPORT INFORMATION
  Report Type: Spontaneous
  Country: US (occurrence: US)
  Receive Date: 20230712
  Receipt Date: 20240425
  Transmission Date: 20240716
  Serious: Yes (Other)
  Sender: FDA-Public Use
  Company Number: US-PFIZER INC-202300247323

PATIENT
  Age: 67 Year
  Sex: Male
  Weight: 104.33 kg

DRUGS (5)
  1. BRAFTOVI [Suspect]
     Active Substance: ENCORAFENIB
     Indication: Colon cancer
     Dosage: TAKES FOUR CAPSULES DAILY
     Route: 048
     Dates: start: 20230315
  2. BRAFTOVI [Suspect]
     Active Substance: ENCORAFENIB
     Indication: BRAF gene mutation
     Dosage: 75MG 4 PILLS PER DAY
     Dates: start: 20240413, end: 20240417
  3. BRAFTOVI [Suspect]
     Active Substance: ENCORAFENIB
     Indication: Colon cancer
  4. VECTIBIX [Suspect]
     Active Substance: PANITUMUMAB
     Indication: Colon cancer
     Dosage: EVERY TWO WEEKS
     Dates: start: 20230315
  5. VECTIBIX [Suspect]
     Active Substance: PANITUMUMAB
     Indication: BRAF gene mutation

REACTIONS (17)
  - Rotator cuff syndrome [Recovering/Resolving]
  - Musculoskeletal stiffness [Unknown]
  - Arthralgia [Not Recovered/Not Resolved]
  - Peripheral swelling [Not Recovered/Not Resolved]
  - Contusion [Not Recovered/Not Resolved]
  - Livedo reticularis [Not Recovered/Not Resolved]
  - Arthritis [Unknown]
  - Palmar erythema [Unknown]
  - Paraesthesia [Unknown]
  - Flushing [Recovering/Resolving]
  - Palpitations [Recovering/Resolving]
  - Dyspnoea [Recovering/Resolving]
  - Heart rate increased [Recovering/Resolving]
  - Fatigue [Recovering/Resolving]
  - Brain natriuretic peptide increased [Recovering/Resolving]
  - Off label use [Unknown]
  - Product use issue [Unknown]

NARRATIVE: CASE EVENT DATE: 20230101
